FAERS Safety Report 6301985-9 (Version None)
Quarter: 2009Q3

REPORT INFORMATION
  Report Type: 
  Country: None (occurrence: None)
  Receive Date: 20090807
  Receipt Date: 20090727
  Transmission Date: 20100115
  Serious: Yes (Disabling)
  Sender: FDA-Public Use
  Company Number: GB-B.I. PHARMACEUTICALS,INC./RIDGEFIELD-2009-UK-00660UK

PATIENT
  Age: 73 Year
  Sex: Male
  Weight: 88 kg

DRUGS (2)
  1. PRAMIPEXOLE DIHYDROCHLORIDE [Suspect]
     Indication: PARKINSON'S DISEASE
     Dosage: 3 MG
     Route: 048
     Dates: start: 20080314
  2. PRAMIPEXOLE DIHYDROCHLORIDE [Suspect]
     Dosage: 0.75 MG
     Route: 048
     Dates: start: 20081101, end: 20090604

REACTIONS (5)
  - APHASIA [None]
  - COGNITIVE DISORDER [None]
  - DEMENTIA ALZHEIMER'S TYPE [None]
  - DYSARTHRIA [None]
  - HALLUCINATION, VISUAL [None]
